FAERS Safety Report 25526653 (Version 2)
Quarter: 2025Q3

REPORT INFORMATION
  Report Type: Spontaneous
  Country: LY (occurrence: LY)
  Receive Date: 20250707
  Receipt Date: 20250926
  Transmission Date: 20251020
  Serious: Yes (Hospitalization)
  Sender: PFIZER
  Company Number: LY-PFIZER INC-PV202500079891

PATIENT
  Age: 69 Year
  Sex: Male
  Weight: 56 kg

DRUGS (3)
  1. OXALIPLATIN [Suspect]
     Active Substance: OXALIPLATIN
     Indication: Rectosigmoid cancer
     Route: 042
     Dates: start: 20241125, end: 20250630
  2. OXALIPLATIN [Suspect]
     Active Substance: OXALIPLATIN
  3. OXALIPLATIN [Suspect]
     Active Substance: OXALIPLATIN

REACTIONS (4)
  - Chills [Unknown]
  - Dyspnoea [Unknown]
  - Feeling cold [Unknown]
  - Drug hypersensitivity [Unknown]

NARRATIVE: CASE EVENT DATE: 20241125
